FAERS Safety Report 7545876-4 (Version None)
Quarter: 2011Q2

REPORT INFORMATION
  Report Type: 
  Country: None (occurrence: None)
  Receive Date: 20110607
  Receipt Date: 20100610
  Transmission Date: 20111010
  Serious: Yes (Other)
  Sender: FDA-Public Use
  Company Number: 2010-2099

PATIENT
  Age: 71 Year
  Sex: Male
  Weight: 67 kg

DRUGS (7)
  1. AMARYL [Concomitant]
  2. APOKYN [Suspect]
     Indication: PARKINSON'S DISEASE
     Dosage: 0.3 ML UP TO 5 TIMES/DAY (0.3 ML, UP TO 5 TIMES/DAY), SUBCUTANEOUS
     Route: 058
     Dates: start: 20090101
  3. STALEVO (STALEVO) [Concomitant]
  4. HUMULIN (INSULIN HUMAN) [Concomitant]
  5. AMBIEN CR [Concomitant]
  6. KLOR-CON [Concomitant]
  7. RAZADYNE [Concomitant]

REACTIONS (1)
  - PULMONARY EMBOLISM [None]
